FAERS Safety Report 5697092-9 (Version None)
Quarter: 2008Q2

REPORT INFORMATION
  Report Type: 
  Country: None (occurrence: None)
  Receive Date: 20080408
  Receipt Date: 20070505
  Transmission Date: 20081010
  Serious: No
  Sender: FDA-Public Use
  Company Number: US-BAYER-US-2007-016473

PATIENT
  Sex: Female

DRUGS (2)
  1. YASMIN [Suspect]
     Route: 048
  2. BENADRYL ^PFIZER WARNER-LAMBERT^ [Concomitant]
     Indication: RASH
     Route: 048

REACTIONS (1)
  - RASH PRURITIC [None]
